FAERS Safety Report 20354744 (Version 1)
Quarter: 2022Q1

REPORT INFORMATION
  Report Type: Spontaneous
  Country: US (occurrence: None)
  Receive Date: 20220119
  Receipt Date: 20220119
  Transmission Date: 20220423
  Serious: No
  Sender: FDA-Public Use
  Company Number: None

PATIENT
  Age: 60 Year
  Sex: Female

DRUGS (1)
  1. AMBRISENTAN [Suspect]
     Active Substance: AMBRISENTAN
     Indication: Pulmonary hypertension
     Dosage: 10MG TABLET DAILY ORAL
     Dates: start: 20210630

REACTIONS (4)
  - COVID-19 [None]
  - Sinusitis [None]
  - Product availability issue [None]
  - Product dose omission issue [None]

NARRATIVE: CASE EVENT DATE: 20220101
